FAERS Safety Report 24841728 (Version 6)
Quarter: 2025Q1

REPORT INFORMATION
  Report Type: Spontaneous
  Country: US (occurrence: US)
  Receive Date: 20250114
  Receipt Date: 20250314
  Transmission Date: 20250409
  Serious: No
  Sender: PFIZER
  Company Number: US-PFIZER INC-202500004038

PATIENT
  Age: 11 Year
  Sex: Male

DRUGS (3)
  1. GENOTROPIN [Suspect]
     Active Substance: SOMATROPIN
     Indication: Growth disorder
     Dosage: 1.3MG EVERY NIGHT
     Dates: start: 20231225
  2. GENOTROPIN [Suspect]
     Active Substance: SOMATROPIN
     Indication: Short stature
     Dosage: 1.3MG EVERY NIGHT
     Dates: start: 202407
  3. GENOTROPIN [Suspect]
     Active Substance: SOMATROPIN

REACTIONS (3)
  - Device use error [Unknown]
  - Device mechanical issue [Unknown]
  - Drug dose omission by device [Unknown]
